FAERS Safety Report 17699241 (Version 1)
Quarter: 2020Q2

REPORT INFORMATION
  Report Type: Spontaneous
  Country: US (occurrence: US)
  Receive Date: 20200423
  Receipt Date: 20200423
  Transmission Date: 20200714
  Serious: No
  Sender: FDA-Public Use
  Company Number: None

PATIENT
  Age: 75 Year
  Sex: Male

DRUGS (7)
  1. METFORMIN ER 500 [Concomitant]
     Active Substance: METFORMIN HYDROCHLORIDE
  2. LOSARTAN 100MG [Concomitant]
     Active Substance: LOSARTAN
  3. METOPROLOL ER 50MG [Concomitant]
  4. CABOMETYX [Suspect]
     Active Substance: CABOZANTINIB S-MALATE
     Indication: RENAL CELL CARCINOMA
     Route: 048
     Dates: start: 20200415
  5. RASUVASTATIN [Concomitant]
     Active Substance: ROSUVASTATIN
  6. GLIPIZIDE ER [Concomitant]
     Active Substance: GLIPIZIDE
  7. PERCOCET 7.5/235 [Concomitant]

REACTIONS (2)
  - Fatigue [None]
  - Blood glucose decreased [None]

NARRATIVE: CASE EVENT DATE: 20200417
